FAERS Safety Report 26169019 (Version 1)
Quarter: 2025Q4

REPORT INFORMATION
  Report Type: Spontaneous
  Country: EU (occurrence: EU)
  Receive Date: 20251217
  Receipt Date: 20251217
  Transmission Date: 20260118
  Serious: Yes (Hospitalization)
  Sender: Onesource Specialty Pharma
  Company Number: EU-STRIDES ARCOLAB LIMITED-2025OS001461

PATIENT
  Age: 23 Year
  Sex: Female

DRUGS (8)
  1. PIPERACILLIN SODIUM\TAZOBACTAM SODIUM [Interacting]
     Active Substance: PIPERACILLIN SODIUM\TAZOBACTAM SODIUM
     Indication: Pseudomonas infection
     Dosage: 4.5 GRAM, EVERY 6 HRS
     Route: 042
  2. PIPERACILLIN SODIUM\TAZOBACTAM SODIUM [Interacting]
     Active Substance: PIPERACILLIN SODIUM\TAZOBACTAM SODIUM
     Dosage: 27 GRAM, QD, CONTINUOUS INFUSION
     Route: 065
  3. MEROPENEM [Interacting]
     Active Substance: MEROPENEM
     Indication: Pseudomonas infection
     Dosage: 2000 MILLIGRAM, EVERY 8 HOURS
     Route: 042
  4. MEROPENEM [Interacting]
     Active Substance: MEROPENEM
     Dosage: 2000 MILLIGRAM, EVERY 6 HRS
     Route: 042
  5. MEROPENEM [Interacting]
     Active Substance: MEROPENEM
     Dosage: 8000 MILLIGRAM, QD, CONTINUOUS INFUSION
     Route: 042
  6. GENTAMICIN [Interacting]
     Active Substance: GENTAMICIN
     Indication: Pseudomonas infection
     Dosage: 6.8 MILLIGRAM/KILOGRAM
     Route: 042
  7. GENTAMICIN [Interacting]
     Active Substance: GENTAMICIN
     Dosage: 7.6 MILLIGRAM/KILOGRAM
     Route: 042
  8. AMIKACIN [Concomitant]
     Active Substance: AMIKACIN
     Indication: Pseudomonas infection
     Dosage: 30 MILLIGRAM/KILOGRAM
     Route: 042

REACTIONS (2)
  - Drug-disease interaction [Unknown]
  - Drug level decreased [None]
